FAERS Safety Report 7320222-X (Version None)
Quarter: 2011Q1

REPORT INFORMATION
  Report Type: 
  Country: None (occurrence: None)
  Receive Date: 20110228
  Receipt Date: 20110218
  Transmission Date: 20110831
  Serious: Yes (Hospitalization, Other)
  Sender: FDA-Public Use
  Company Number: PHHO2011TW03297

PATIENT
  Sex: Male
  Weight: 71 kg

DRUGS (8)
  1. ROSUVASTATIN [Concomitant]
     Indication: HYPERCHOLESTEROLAEMIA
  2. LORAZEPAM [Concomitant]
     Indication: INSOMNIA
  3. URSODIOL [Concomitant]
  4. CHLORHEXIDINE GLUCONATE [Concomitant]
     Indication: MUCOSAL INFLAMMATION
  5. EVEROLIMUS [Suspect]
     Indication: MULTIPLE MYELOMA
     Dosage: 7.5 MG, QD
     Route: 048
     Dates: start: 20101209, end: 20110131
  6. IRBESARTAN [Concomitant]
     Indication: HYPERTENSION
  7. FEXOFENADINE [Concomitant]
     Indication: PRURITUS
  8. TRIAMCINOLONE [Concomitant]
     Indication: MUCOSAL INFLAMMATION

REACTIONS (10)
  - PRODUCTIVE COUGH [None]
  - PLEURAL EFFUSION [None]
  - PULMONARY OEDEMA [None]
  - HEPATIC NEOPLASM MALIGNANT [None]
  - HEPATIC NECROSIS [None]
  - INTERSTITIAL LUNG DISEASE [None]
  - DYSPNOEA EXERTIONAL [None]
  - METASTASES TO LUNG [None]
  - OEDEMA [None]
  - METASTASES TO LYMPH NODES [None]
